FAERS Safety Report 10365650 (Version 1)
Quarter: 2014Q3

REPORT INFORMATION
  Report Type: Spontaneous
  Country: CA (occurrence: CA)
  Receive Date: 20140806
  Receipt Date: 20140806
  Transmission Date: 20150326
  Serious: Yes (Hospitalization, Other)
  Sender: FDA-Public Use
  Company Number: PHHY2014CA095810

PATIENT
  Age: 77 Year
  Sex: Female

DRUGS (8)
  1. PARACETAMOL [Suspect]
     Active Substance: ACETAMINOPHEN
     Indication: NECK PAIN
     Dosage: 325 MG, BID
  2. LEVOTHYROXINE [Concomitant]
     Active Substance: LEVOTHYROXINE
  3. CROMOLYN [Concomitant]
     Active Substance: CROMOLYN
  4. BETAMETHASONE [Concomitant]
     Active Substance: BETAMETHASONE
  5. ACETYLSALICYLIC ACID [Concomitant]
     Active Substance: ASPIRIN
  6. DOCUSATE SODIUM. [Concomitant]
     Active Substance: DOCUSATE SODIUM
  7. RABEPRAZOLE [Concomitant]
     Active Substance: RABEPRAZOLE
  8. HYDROCORTISONE CREAM (B.P.C.,B.N.F.) [Concomitant]

REACTIONS (13)
  - Methaemoglobinaemia [Recovering/Resolving]
  - Blood lactic acid increased [Recovering/Resolving]
  - Klebsiella test positive [Recovering/Resolving]
  - Blood glucose increased [Recovering/Resolving]
  - Metabolic acidosis [Recovering/Resolving]
  - Depressed level of consciousness [Recovering/Resolving]
  - Toxicity to various agents [Recovering/Resolving]
  - Intentional overdose [Recovering/Resolving]
  - Blood pressure decreased [Recovering/Resolving]
  - Intentional self-injury [Unknown]
  - Coma [Recovered/Resolved]
  - Unresponsive to stimuli [Recovering/Resolving]
  - Body temperature decreased [Recovering/Resolving]
